FAERS Safety Report 16881179 (Version 3)
Quarter: 2019Q4

REPORT INFORMATION
  Report Type: Spontaneous
  Country: JP (occurrence: JP)
  Receive Date: 20191003
  Receipt Date: 20191018
  Transmission Date: 20200122
  Serious: Yes (Death, Other)
  Sender: FDA-Public Use
  Company Number: JP-OTSUKA-2019_034055

PATIENT
  Age: 54 Year
  Sex: Male

DRUGS (8)
  1. SULTOPRIDE HYDROCHLORIDE [Suspect]
     Active Substance: SULTOPRIDE HYDROCHLORIDE
     Dosage: 50 MG, QD
     Route: 048
     Dates: start: 20190724, end: 20190829
  2. AKINETON [Concomitant]
     Active Substance: BIPERIDEN HYDROCHLORIDE
     Indication: PRODUCT USED FOR UNKNOWN INDICATION
     Dosage: UNK, PRN
     Route: 065
  3. LASIX [Concomitant]
     Active Substance: FUROSEMIDE
     Indication: PRODUCT USED FOR UNKNOWN INDICATION
     Dosage: UNK, PRN
     Route: 065
  4. SULTOPRIDE HYDROCHLORIDE [Suspect]
     Active Substance: SULTOPRIDE HYDROCHLORIDE
     Indication: PRODUCT USED FOR UNKNOWN INDICATION
     Dosage: 50 MG, QD
     Route: 048
     Dates: start: 20190918, end: 20190929
  5. ABILIFY [Suspect]
     Active Substance: ARIPIPRAZOLE
     Indication: SCHIZOPHRENIA
     Dosage: 12 MG, QD
     Route: 048
     Dates: start: 20190619, end: 20190929
  6. ABILIFY [Suspect]
     Active Substance: ARIPIPRAZOLE
     Indication: SCHIZOPHRENIA
     Dosage: 6 MG, QD
     Route: 048
     Dates: start: 20190306, end: 20190618
  7. SULTOPRIDE HYDROCHLORIDE [Suspect]
     Active Substance: SULTOPRIDE HYDROCHLORIDE
     Dosage: 100 MG, QD
     Route: 048
     Dates: start: 20190619, end: 20190723
  8. ABILIFY [Suspect]
     Active Substance: ARIPIPRAZOLE
     Indication: SCHIZOPHRENIA
     Dosage: 3 MG, QD
     Route: 048
     Dates: start: 20190127, end: 20190305

REACTIONS (6)
  - Head injury [Unknown]
  - Eating disorder symptom [Unknown]
  - Cardiac arrest [Fatal]
  - Inappropriate antidiuretic hormone secretion [Fatal]
  - Fall [Unknown]
  - Depressed level of consciousness [Unknown]

NARRATIVE: CASE EVENT DATE: 20190929
